FAERS Safety Report 16776432 (Version 2)
Quarter: 2019Q3

REPORT INFORMATION
  Report Type: Report from Study
  Country: US (occurrence: US)
  Receive Date: 20190905
  Receipt Date: 20190911
  Transmission Date: 20191005
  Serious: Yes (Other)
  Sender: FDA-Public Use
  Company Number: US-TESAROUBC-2019-TSO02969-US

PATIENT
  Age: 71 Year
  Sex: Female

DRUGS (1)
  1. ZEJULA [Suspect]
     Active Substance: NIRAPARIB
     Indication: OVARIAN CANCER
     Dosage: 200 MG, HS WITH WATER
     Route: 048
     Dates: start: 20190816, end: 20190906

REACTIONS (9)
  - Vision blurred [Unknown]
  - Carbohydrate antigen 125 increased [Unknown]
  - Hyperhidrosis [Not Recovered/Not Resolved]
  - Platelet count decreased [Unknown]
  - Petechiae [Unknown]
  - White blood cell count decreased [Unknown]
  - Hypotension [Recovered/Resolved]
  - Contusion [Not Recovered/Not Resolved]
  - Fall [Unknown]

NARRATIVE: CASE EVENT DATE: 2019
